FAERS Safety Report 25717921 (Version 1)
Quarter: 2025Q3

REPORT INFORMATION
  Report Type: Report from Study
  Country: US (occurrence: US)
  Receive Date: 20250822
  Receipt Date: 20250822
  Transmission Date: 20251020
  Serious: Yes (Death)
  Sender: DAIICHI
  Company Number: US-DSJP-DS-2025-123975-US

PATIENT
  Age: 82 Year
  Sex: Female

DRUGS (3)
  1. ENHERTU [Suspect]
     Active Substance: FAM-TRASTUZUMAB DERUXTECAN-NXKI
     Indication: Breast cancer female
     Dosage: 300 MG, ONCE EVERY 3 WK
     Route: 042
     Dates: start: 20241002
  2. ENHERTU [Suspect]
     Active Substance: FAM-TRASTUZUMAB DERUXTECAN-NXKI
     Route: 042
     Dates: start: 2025, end: 2025
  3. ENHERTU [Suspect]
     Active Substance: FAM-TRASTUZUMAB DERUXTECAN-NXKI
     Dosage: 300 MG, ONCE EVERY 3 WK
     Route: 042
     Dates: start: 2025, end: 20250820

REACTIONS (1)
  - Death [Fatal]

NARRATIVE: CASE EVENT DATE: 20250820
